FAERS Safety Report 9223327 (Version 1)
Quarter: 2013Q2

REPORT INFORMATION
  Report Type: Spontaneous
  Country: FR (occurrence: FR)
  Receive Date: 20130410
  Receipt Date: 20130410
  Transmission Date: 20140414
  Serious: Yes (Life-Threatening, Hospitalization, Other)
  Sender: FDA-Public Use
  Company Number: FR-MERCK-1304FRA003149

PATIENT
  Age: 58 Year
  Sex: Male

DRUGS (6)
  1. VELMETIA [Suspect]
     Indication: TYPE 2 DIABETES MELLITUS
     Dosage: UNK
     Route: 048
     Dates: start: 201112, end: 20130126
  2. BI-PROFENID [Interacting]
     Indication: BACK PAIN
     Dosage: UNK
     Route: 065
     Dates: start: 201209
  3. COVERSYL (PERINDOPRIL ERBUMINE) [Interacting]
     Indication: PRODUCT USED FOR UNKNOWN INDICATION
     Dosage: UNK
     Route: 065
     Dates: start: 201104
  4. NOCTAMIDE [Concomitant]
     Dosage: UNK
     Dates: start: 201104
  5. LOXEN [Concomitant]
     Dosage: UNK
     Dates: start: 201104
  6. LYSANXIA [Concomitant]
     Dosage: UNK
     Dates: start: 201104

REACTIONS (5)
  - Lactic acidosis [Unknown]
  - Renal failure acute [Recovering/Resolving]
  - Cardio-respiratory arrest [Recovered/Resolved]
  - Overdose [Unknown]
  - Drug interaction [Unknown]
